FAERS Safety Report 7109718-3 (Version None)
Quarter: 2010Q4

REPORT INFORMATION
  Report Type: 
  Country: None (occurrence: None)
  Receive Date: 20101118
  Receipt Date: 20101106
  Transmission Date: 20110411
  Serious: Yes (Other)
  Sender: FDA-Public Use
  Company Number: IT-ELI_LILLY_AND_COMPANY-IT201010006263

PATIENT
  Sex: Male

DRUGS (5)
  1. FORTEO [Suspect]
     Indication: OSTEOPOROSIS
     Dosage: 20 UG, DAILY (1/D)
     Route: 058
     Dates: start: 20100611, end: 20100720
  2. FORTEO [Suspect]
     Dosage: 20 UG, DAILY (1/D)
     Route: 058
     Dates: start: 20100820, end: 20101003
  3. EUTIROX [Concomitant]
     Dosage: 1 D/F, DAILY (1/D)
     Dates: start: 20100611, end: 20100720
  4. DELTA-CORTEF [Concomitant]
     Dosage: 1 D/F, DAILY (1/D)
  5. DIDROGYL [Concomitant]
     Dosage: 20 D/F, WEEKLY (1/W)

REACTIONS (4)
  - ERYTHEMA [None]
  - PRURITUS GENERALISED [None]
  - RESPIRATORY FAILURE [None]
  - SENSORY DISTURBANCE [None]
